FAERS Safety Report 4485841-7 (Version None)
Quarter: 2004Q3

REPORT INFORMATION
  Report Type: 
  Country: None (occurrence: None)
  Receive Date: 20040921
  Receipt Date: 20031009
  Transmission Date: 20050211
  Serious: Yes (Death)
  Sender: FDA-Public Use
  Company Number: 163-20785-03100242

PATIENT

DRUGS (3)
  1. THALOMID [Suspect]
     Indication: GLIOBLASTOMA MULTIFORME
     Dosage: 250 MG, QHS, ORAL
     Route: 048
     Dates: end: 20020607
  2. CELEBREX [Suspect]
     Indication: GLIOBLASTOMA MULTIFORME
     Dosage: 400 MG, BID, ORAL
     Route: 048
     Dates: end: 20020607
  3. TEMODAR [Suspect]
     Dosage: 200 MG/M2, DAILY X 5 DAYS, ORAL
     Route: 048
     Dates: end: 20020521

REACTIONS (2)
  - DEATH [None]
  - DISEASE PROGRESSION [None]
